FAERS Safety Report 25720465 (Version 2)
Quarter: 2025Q3

REPORT INFORMATION
  Report Type: Spontaneous
  Country: EU (occurrence: EU)
  Receive Date: 20250825
  Receipt Date: 20250918
  Transmission Date: 20251020
  Serious: Yes (Death, Hospitalization, Other)
  Sender: AUROBINDO
  Company Number: EU-DialogSolutions-SAAVPROD-PI807892-C1

PATIENT
  Age: 84 Year
  Sex: Female

DRUGS (3)
  1. APIXABAN [Suspect]
     Active Substance: APIXABAN
     Indication: Product used for unknown indication
     Route: 048
  2. ENOXAPARIN SODIUM [Suspect]
     Active Substance: ENOXAPARIN SODIUM
     Indication: Product used for unknown indication
     Route: 042
  3. PROTAMINE SULFATE [Concomitant]
     Active Substance: PROTAMINE SULFATE
     Indication: Anticoagulant therapy
     Route: 065

REACTIONS (9)
  - Shock haemorrhagic [Fatal]
  - Syncope [Fatal]
  - Hypotension [Fatal]
  - Hyperhidrosis [Fatal]
  - Abdominal pain [Fatal]
  - Gastrointestinal hypomotility [Fatal]
  - Abdominal mass [Fatal]
  - Pelvic haematoma [Fatal]
  - Haemorrhage [Fatal]
